FAERS Safety Report 10584113 (Version 1)
Quarter: 2014Q4

REPORT INFORMATION
  Report Type: Spontaneous
  Country: US (occurrence: None)
  Receive Date: 20141113
  Receipt Date: 20141113
  Transmission Date: 20150529
  Serious: Yes (Other)
  Sender: FDA-Public Use
  Company Number: None

PATIENT
  Age: 47 Year
  Sex: Female

DRUGS (1)
  1. TEMOZOLOMIDE. [Suspect]
     Active Substance: TEMOZOLOMIDE
     Indication: BRAIN NEOPLASM MALIGNANT
     Route: 048
     Dates: start: 20140703

REACTIONS (5)
  - Head discomfort [None]
  - Decreased appetite [None]
  - Body temperature decreased [None]
  - Feeling abnormal [None]
  - Fatigue [None]

NARRATIVE: CASE EVENT DATE: 20141016
